FAERS Safety Report 22224127 (Version 17)
Quarter: 2025Q2

REPORT INFORMATION
  Report Type: Report from Study
  Country: CO (occurrence: CO)
  Receive Date: 20230418
  Receipt Date: 20250515
  Transmission Date: 20250716
  Serious: Yes (Hospitalization, Other)
  Sender: TAKEDA
  Company Number: CO-TAKEDA-2023TUS038763

PATIENT
  Age: 4 Year
  Sex: Female
  Weight: 14 kg

DRUGS (4)
  1. TEDUGLUTIDE [Suspect]
     Active Substance: TEDUGLUTIDE
     Indication: Short-bowel syndrome
     Dosage: 0.7 MILLIGRAM, QD
     Dates: start: 20230323
  2. TEDUGLUTIDE [Suspect]
     Active Substance: TEDUGLUTIDE
     Dosage: UNK UNK, QOD
  3. TEDUGLUTIDE [Suspect]
     Active Substance: TEDUGLUTIDE
  4. TEDUGLUTIDE [Suspect]
     Active Substance: TEDUGLUTIDE

REACTIONS (22)
  - Vascular device infection [Recovering/Resolving]
  - Pyrexia [Recovered/Resolved]
  - Secretion discharge [Unknown]
  - Abdominal sepsis [Unknown]
  - Erythema [Unknown]
  - Gastrointestinal inflammation [Recovered/Resolved]
  - Gastroenteritis [Not Recovered/Not Resolved]
  - Malaise [Not Recovered/Not Resolved]
  - Diarrhoea [Recovered/Resolved]
  - Weight decreased [Not Recovered/Not Resolved]
  - Body height decreased [Unknown]
  - Weight increased [Unknown]
  - Insurance issue [Recovered/Resolved]
  - Product prescribing error [Unknown]
  - Incorrect dose administered [Unknown]
  - Product use issue [Recovered/Resolved]
  - Inappropriate schedule of product administration [Unknown]
  - Treatment noncompliance [Unknown]
  - Product availability issue [Unknown]
  - Product distribution issue [Unknown]
  - Flatulence [Unknown]
  - Body height increased [Unknown]

NARRATIVE: CASE EVENT DATE: 20230401
